FAERS Safety Report 23517233 (Version 1)
Quarter: 2024Q1

REPORT INFORMATION
  Report Type: Report from Study
  Country: US (occurrence: US)
  Receive Date: 20240213
  Receipt Date: 20240213
  Transmission Date: 20240410
  Serious: Yes (Hospitalization)
  Sender: FDA-Public Use
  Company Number: US-Eisai-EC-2024-158868

PATIENT
  Age: 69 Year
  Sex: Female
  Weight: 94.54 kg

DRUGS (1)
  1. LENVIMA [Suspect]
     Active Substance: LENVATINIB
     Indication: Endometrial cancer
     Route: 048
     Dates: start: 20231211

REACTIONS (3)
  - Disorientation [Unknown]
  - Pruritus [Unknown]
  - Reduced facial expression [Unknown]

NARRATIVE: CASE EVENT DATE: 20240204
